FAERS Safety Report 25832878 (Version 1)
Quarter: 2025Q3

REPORT INFORMATION
  Report Type: Spontaneous
  Country: US (occurrence: None)
  Receive Date: 20250922
  Receipt Date: 20250922
  Transmission Date: 20251020
  Serious: Yes (unspecified)
  Sender: FDA-CTU
  Company Number: None

PATIENT
  Age: 77 Year
  Sex: Female
  Weight: 56.25 kg

DRUGS (10)
  1. PROLIA [Suspect]
     Active Substance: DENOSUMAB
     Indication: Osteoporosis
     Route: 058
     Dates: start: 20231101, end: 20250522
  2. METOPROLOL [Concomitant]
     Active Substance: METOPROLOL
  3. LIVALO [Concomitant]
     Active Substance: PITAVASTATIN CALCIUM
  4. LYRICA [Concomitant]
     Active Substance: PREGABALIN
  5. TRAMADOL [Concomitant]
     Active Substance: TRAMADOL
  6. HERBALS\TURMERIC [Concomitant]
     Active Substance: HERBALS\TURMERIC
  7. MULTI-VITAMIN [Concomitant]
     Active Substance: .ALPHA.-TOCOPHEROL ACETATE, DL-\ASCORBIC ACID\CYANOCOBALAMIN\FLUORIDE ION\FOLIC ACID\NIACIN\PYRIDOXI
  8. CALCIUM [Concomitant]
     Active Substance: CALCIUM
  9. MAGNESIUM [Concomitant]
     Active Substance: MAGNESIUM
  10. VITAMIN D [Concomitant]
     Active Substance: VITAMIN D NOS

REACTIONS (3)
  - Foot fracture [None]
  - Pathological fracture [None]
  - Loose tooth [None]

NARRATIVE: CASE EVENT DATE: 20250727
